FAERS Safety Report 17318356 (Version 1)
Quarter: 2020Q1

REPORT INFORMATION
  Report Type: Spontaneous
  Country: US (occurrence: US)
  Receive Date: 20200124
  Receipt Date: 20200124
  Transmission Date: 20200409
  Serious: Yes (Other)
  Sender: FDA-Public Use
  Company Number: US-EPIC PHARMA LLC-2020EPC00019

PATIENT
  Age: 8 Year
  Sex: Male

DRUGS (32)
  1. RASBURICASE [Concomitant]
     Active Substance: RASBURICASE
     Indication: ACUTE KIDNEY INJURY
  2. FAMOTIDINE. [Concomitant]
     Active Substance: FAMOTIDINE
     Dosage: 12 MG, 1X/DAY (EVERY 24 HOURS)
     Route: 042
  3. FENTANYL. [Concomitant]
     Active Substance: FENTANYL
     Dosage: TITRATED TO MAINTAIN SEDATION
     Route: 042
  4. MORPHINE SULFATE. [Concomitant]
     Active Substance: MORPHINE SULFATE
     Dosage: 4 MG, EVERY 1 HOUR, AS NEEDED
     Route: 042
  5. THIAMINE HYDROCHLORIDE. [Concomitant]
     Active Substance: THIAMINE HYDROCHLORIDE
     Dosage: 100 MG, 1X/DAY (EVERY HOURS)
     Route: 048
  6. CYCLOPHOSPHAMIDE. [Concomitant]
     Active Substance: CYCLOPHOSPHAMIDE
     Indication: BURKITT^S LYMPHOMA
     Dosage: 300 MG/M2 Q 12 HR ? 6 DOSES
     Route: 042
  7. METHOTREXATE. [Concomitant]
     Active Substance: METHOTREXATE
     Dosage: 12 MG/M2 ? 1 DOSE
     Route: 037
  8. VINCRISTINE SULFATE. [Concomitant]
     Active Substance: VINCRISTINE SULFATE
     Indication: BURKITT^S LYMPHOMA
     Dosage: 1.5 MG/M2 ? 1 DOSE
     Route: 042
  9. LIDOCAINE 2.5% AND PRILOCAINE 2.5% CREAM [Concomitant]
     Active Substance: LIDOCAINE\PRILOCAINE
     Dosage: UNK UNK, AS NEEDED
     Route: 061
  10. NICARDIPINE HCL [Suspect]
     Active Substance: NICARDIPINE HYDROCHLORIDE
     Indication: HYPERTENSION
     Dosage: 1 ?G/KG/MIN
     Route: 042
  11. CYTARABINE. [Concomitant]
     Active Substance: CYTARABINE
     Indication: BURKITT^S LYMPHOMA
     Dosage: 50 MG/M2 ? 1 DOSE
     Route: 037
  12. FLUCONAZOLE. [Concomitant]
     Active Substance: FLUCONAZOLE
     Dosage: 90 MG, 1X/DAY (EVERY 24 HOURS)
     Route: 042
  13. VANCOMYCIN [Concomitant]
     Active Substance: VANCOMYCIN
     Dosage: 300 MG (DOSED INTERMITTENTLY)
     Route: 042
  14. TPN [Concomitant]
     Active Substance: AMINO ACIDS\DEXTROSE\ELECTROLYTES NOS\SOYBEAN OIL
     Route: 042
  15. MIDAZOLAM HYDROCHLORIDE. [Concomitant]
     Active Substance: MIDAZOLAM HYDROCHLORIDE
     Dosage: TITRATED TO MAINTAIN SEDATION
     Route: 042
  16. METHOTREXATE. [Concomitant]
     Active Substance: METHOTREXATE
     Indication: BURKITT^S LYMPHOMA
     Dosage: 12 MG/M2 ? 1 DOSE
     Route: 037
  17. DOXORUBICIN HYDROCHLORIDE. [Concomitant]
     Active Substance: DOXORUBICIN HYDROCHLORIDE
     Indication: BURKITT^S LYMPHOMA
     Dosage: 50 MG/M2 ? 1 DOSE
     Route: 042
  18. VINCRISTINE SULFATE. [Concomitant]
     Active Substance: VINCRISTINE SULFATE
     Dosage: 1.5 MG/M2 ? 1 DOSE
     Route: 042
  19. MIDAZOLAM HYDROCHLORIDE. [Concomitant]
     Active Substance: MIDAZOLAM HYDROCHLORIDE
     Dosage: 4 MG, EVERY 1 HOUR, AS NEEDED
     Route: 042
  20. DEXAMETHASONE. [Concomitant]
     Active Substance: DEXAMETHASONE
     Indication: BURKITT^S LYMPHOMA
     Dosage: 10 MG/M2/DAY Q 12 HR ? 5 DAYS
     Route: 042
  21. MESNA. [Concomitant]
     Active Substance: MESNA
     Indication: BURKITT^S LYMPHOMA
     Dosage: 100 MG/M2 WITH CYCLOPHOSPHAMIDE AND 3 HR AFTER START OF CYCLOPHOSPHAMIDE
     Route: 042
  22. CYTARABINE. [Concomitant]
     Active Substance: CYTARABINE
     Dosage: 50 MG/M2 ? 1 DOSEUNK
     Route: 037
  23. DIPHENHYDRAMINE HYDROCHLORIDE. [Concomitant]
     Active Substance: DIPHENHYDRAMINE HYDROCHLORIDE
     Dosage: 25 MG, EVERY 8 HOURS AS NEEDED
     Route: 042
  24. FENTANYL. [Concomitant]
     Active Substance: FENTANYL
     Dosage: 0.03 MG, EVERY 2 HOURS AS NEEDED
     Route: 042
  25. HEPARIN [Concomitant]
     Active Substance: HEPARIN SODIUM
     Dosage: 3 ML/HR
     Route: 065
  26. ONDANSETRON [Concomitant]
     Active Substance: ONDANSETRON
     Dosage: 4 MG, EVERY 6 HOURS, AS NEEDED
     Route: 042
  27. VECURONIUM BROMIDE. [Concomitant]
     Active Substance: VECURONIUM BROMIDE
     Dosage: 5 MG, EVERY 1 HOUR, AS NEEDED
     Route: 042
  28. CEFEPIME [Concomitant]
     Active Substance: CEFEPIME HYDROCHLORIDE
     Dosage: 1.5 G, 1X/DAY (EVERY 24 HOURS)
     Route: 042
  29. LEUCOVORIN. [Concomitant]
     Active Substance: LEUCOVORIN
     Dosage: 5.5 MG EVERY 6 HOURS
     Route: 042
  30. TRIMETHOPRIM SULFAMETHOXAZOLE [Concomitant]
     Active Substance: SULFAMETHOXAZOLE\TRIMETHOPRIM
     Dosage: 5 ML, 2X/DAY (EVERY 12 HOURS ON 3 CONSECUTIVE DAYS)
     Route: 065
  31. AMLODIPINE [Suspect]
     Active Substance: AMLODIPINE BESYLATE
     Indication: HYPERTENSION
     Dosage: 5 MG, 1X/DAY
     Route: 048
  32. BACITRACIN. [Concomitant]
     Active Substance: BACITRACIN
     Dosage: UNK, 3X/DAY
     Route: 061

REACTIONS (3)
  - Angioedema [Recovered/Resolved]
  - Upper airway obstruction [Recovered/Resolved]
  - Macroglossia [Recovered/Resolved]
